FAERS Safety Report 20424914 (Version 2)
Quarter: 2022Q1

REPORT INFORMATION
  Report Type: Report from Study
  Country: BR (occurrence: BR)
  Receive Date: 20220204
  Receipt Date: 20220309
  Transmission Date: 20220424
  Serious: Yes (Death, Hospitalization, Other)
  Sender: FDA-Public Use
  Company Number: BR-ABBVIE-22K-020-4262213-00

PATIENT
  Sex: Male
  Weight: 58 kg

DRUGS (1)
  1. RINVOQ [Suspect]
     Active Substance: UPADACITINIB
     Indication: Rheumatoid arthritis
     Route: 048
     Dates: end: 20220122

REACTIONS (11)
  - Bone operation [Fatal]
  - Asthenia [Fatal]
  - General physical health deterioration [Fatal]
  - Hypophagia [Fatal]
  - Liver disorder [Fatal]
  - Lung disorder [Fatal]
  - Condition aggravated [Fatal]
  - Infection [Fatal]
  - Pneumonia [Fatal]
  - Femur fracture [Unknown]
  - Fall [Unknown]
